FAERS Safety Report 7275070-6 (Version None)
Quarter: 2011Q1

REPORT INFORMATION
  Report Type: 
  Country: None (occurrence: None)
  Receive Date: 20110204
  Receipt Date: 20110203
  Transmission Date: 20110831
  Serious: No
  Sender: FDA-Public Use
  Company Number: US-B.I. PHARMACEUTICALS,INC./RIDGEFIELD-2011-BP-01891BP

PATIENT
  Sex: Female
  Weight: 91.8 kg

DRUGS (4)
  1. WARFARIN SODIUM [Concomitant]
     Indication: ATRIAL FIBRILLATION
     Route: 048
     Dates: start: 20100310
  2. DARVOCET-N 100 [Concomitant]
     Indication: OSTEOARTHRITIS
     Dosage: 100 MG
     Route: 048
     Dates: start: 20080416
  3. MICARDIS [Suspect]
     Indication: HYPERTENSION
     Dosage: 80 MG
     Route: 048
     Dates: start: 20080404
  4. TOPROL-XL [Concomitant]
     Indication: HYPERTENSION
     Dosage: 50 MG
     Route: 048
     Dates: start: 20100329

REACTIONS (1)
  - CATARACT OPERATION [None]
